FAERS Safety Report 5206667-2 (Version None)
Quarter: 2007Q1

REPORT INFORMATION
  Report Type: 
  Country: None (occurrence: None)
  Receive Date: 20070109
  Receipt Date: 20061221
  Transmission Date: 20070707
  Serious: Yes (Hospitalization)
  Sender: FDA-Public Use
  Company Number: 234262

PATIENT
  Age: 31 Year
  Sex: Male

DRUGS (2)
  1. RITUXAN [Suspect]
     Indication: SYSTEMIC LUPUS ERYTHEMATOSUS
     Dosage: X2, INTRAVENOUS
     Route: 042
     Dates: start: 20061001, end: 20061101
  2. CYCLOPHOSPHAMIDE [Concomitant]

REACTIONS (1)
  - INTESTINAL OBSTRUCTION [None]
